FAERS Safety Report 8202439-5 (Version None)
Quarter: 2012Q1

REPORT INFORMATION
  Report Type: 
  Country: None (occurrence: None)
  Receive Date: 20120312
  Receipt Date: 20111219
  Transmission Date: 20120608
  Serious: Yes (Other)
  Sender: FDA-Public Use
  Company Number: US-ABBOTT-11P-163-0881657-00

PATIENT
  Sex: Male
  Weight: 36.32 kg

DRUGS (1)
  1. DEPAKOTE [Suspect]
     Indication: CONVULSION
     Dates: end: 20100601

REACTIONS (3)
  - MOOD ALTERED [None]
  - AGITATION [None]
  - CONVULSION [None]
